FAERS Safety Report 9542524 (Version 1)
Quarter: 2013Q3

REPORT INFORMATION
  Report Type: Spontaneous
  Country: SG (occurrence: SG)
  Receive Date: 20130923
  Receipt Date: 20130923
  Transmission Date: 20140515
  Serious: Yes (Other)
  Sender: FDA-Public Use
  Company Number: SG-PFIZER INC-2013266158

PATIENT
  Age: 61 Year
  Sex: Male

DRUGS (1)
  1. CARBOPLATIN [Suspect]
     Route: 042

REACTIONS (2)
  - Angioedema [Unknown]
  - Wheezing [Unknown]
